FAERS Safety Report 8857616 (Version 1)
Quarter: 2012Q4

REPORT INFORMATION
  Report Type: 
  Country: NL (occurrence: NL)
  Receive Date: 20121024
  Receipt Date: 20121024
  Transmission Date: 20130627
  Serious: Yes (Hospitalization)
  Sender: FDA-Public Use
  Company Number: NL-B.I. PHARMACEUTICALS,INC./RIDGEFIELD-2012-NL-00438NL

PATIENT
  Sex: Female

DRUGS (5)
  1. ATROVENT [Suspect]
     Indication: CHRONIC OBSTRUCTIVE PULMONARY DISEASE
  2. PRADAXA [Suspect]
     Indication: ARRHYTHMIA
     Dosage: 300 mg
     Dates: start: 201206
  3. PREDNISON [Concomitant]
     Dosage: 10 mg
  4. FLIXOTIDE [Concomitant]
  5. FORADIL [Concomitant]

REACTIONS (3)
  - Dyspnoea [Unknown]
  - Thirst [Unknown]
  - Pollakiuria [Unknown]
